FAERS Safety Report 6557628-2 (Version None)
Quarter: 2010Q1

REPORT INFORMATION
  Report Type: 
  Country: None (occurrence: None)
  Receive Date: 20100128
  Receipt Date: 20100128
  Transmission Date: 20100710
  Serious: Yes (Hospitalization)
  Sender: FDA-Public Use
  Company Number: None

PATIENT
  Age: 78 Year
  Sex: Female
  Weight: 75.9 kg

DRUGS (1)
  1. CIPROFLOXACIN [Suspect]
     Indication: URINARY TRACT INFECTION
     Dosage: CIPROFLOXACIN HCL 10 DAYS BID ORAL
     Route: 048

REACTIONS (2)
  - DIARRHOEA [None]
  - STEVENS-JOHNSON SYNDROME [None]
